FAERS Safety Report 9670015 (Version 1)
Quarter: 2013Q4

REPORT INFORMATION
  Report Type: Spontaneous
  Country: US (occurrence: None)
  Receive Date: 20131104
  Receipt Date: 20131104
  Transmission Date: 20140711
  Serious: Yes (Death)
  Sender: FDA-Public Use
  Company Number: SYM-2013-12139

PATIENT
  Age: 67 Year
  Sex: Female

DRUGS (1)
  1. XENAZINE (TETRABENAZINE) [Suspect]
     Indication: HUNTINGTON^S DISEASE
     Dosage: 3 IN 1 DAY, ORAL.
     Route: 048
     Dates: start: 20130304, end: 20131003

REACTIONS (3)
  - Intestinal obstruction [None]
  - Sepsis [None]
  - Post procedural complication [None]
